FAERS Safety Report 19451679 (Version 1)
Quarter: 2021Q2

REPORT INFORMATION
  Report Type: Spontaneous
  Country: IR (occurrence: IR)
  Receive Date: 20210623
  Receipt Date: 20210623
  Transmission Date: 20210717
  Serious: Yes (Hospitalization, Other)
  Sender: FDA-Public Use
  Company Number: IR-LUPIN PHARMACEUTICALS INC.-2021-09898

PATIENT
  Age: 42 Year
  Sex: Male

DRUGS (10)
  1. VANCOMYCIN [Suspect]
     Active Substance: VANCOMYCIN
     Dosage: 500 MILLIGRAM PER DAY (FROM DAY 2 TO DAY 10)
     Route: 042
     Dates: start: 202003
  2. METHYLPREDNISOLONE. [Suspect]
     Active Substance: METHYLPREDNISOLONE
     Indication: COVID-19
     Dosage: 500 MILLIGRAM (ON DAY 1)
     Route: 065
     Dates: start: 20200326, end: 20200326
  3. VANCOMYCIN [Suspect]
     Active Substance: VANCOMYCIN
     Indication: COVID-19
     Dosage: 1 GRAM (ON DAY 1)
     Route: 042
     Dates: start: 202003
  4. TOCILIZUMAB. [Suspect]
     Active Substance: TOCILIZUMAB
     Indication: COVID-19
     Dosage: 162 MILLIGRAM (4 DOSES)
     Route: 058
     Dates: start: 2020
  5. CONVALESCENT PLASMA COVID?19 [Suspect]
     Active Substance: COVID-19 CONVALESCENT PLASMA
     Indication: COVID-19
     Dosage: 2 BAGS (500CC EACH BAG)
     Route: 065
     Dates: start: 2020
  6. LOPINAVIR/RITONAVIR [Suspect]
     Active Substance: LOPINAVIR\RITONAVIR
     Indication: COVID-19
     Dosage: 2 DOSAGE FORM, BID (FOR 5 DAYS)
     Route: 065
     Dates: start: 202003
  7. METHYLPREDNISOLONE. [Suspect]
     Active Substance: METHYLPREDNISOLONE
     Dosage: 250 MILLIGRAM PER DAY (ON DAY 2 AND 3)
     Route: 065
     Dates: start: 20200327, end: 20200328
  8. METHYLPREDNISOLONE. [Suspect]
     Active Substance: METHYLPREDNISOLONE
     Dosage: 100 MILLIGRAM PER DAY (FROM DAY 4 FOR THE FOLLOWING 10 DAYS)
     Route: 065
     Dates: start: 20200329, end: 20200407
  9. MEROPENEM. [Suspect]
     Active Substance: MEROPENEM
     Indication: COVID-19
     Dosage: 500 MILLIGRAM, TID (FOR 2 WEEKS)
     Route: 042
     Dates: start: 202003
  10. NOREPINEPHRINE. [Concomitant]
     Active Substance: NOREPINEPHRINE
     Indication: HYPOTENSION
     Dosage: INITIAL DOSE: 8?10 MCG/MIN CONTINUOUS IV INFUSION; SUBSEQUENT MAINTENANCE DOSE: 2?4 MCG/MIN
     Route: 042
     Dates: start: 202003

REACTIONS (2)
  - Blood glucose increased [Unknown]
  - Off label use [Unknown]

NARRATIVE: CASE EVENT DATE: 202003
